FAERS Safety Report 8190793-2 (Version None)
Quarter: 2012Q1

REPORT INFORMATION
  Report Type: 
  Country: None (occurrence: None)
  Receive Date: 20120307
  Receipt Date: 20120224
  Transmission Date: 20120608
  Serious: Yes (Other)
  Sender: FDA-Public Use
  Company Number: US-ELI_LILLY_AND_COMPANY-US201107005023

PATIENT
  Sex: Female

DRUGS (2)
  1. FORTEO [Suspect]
     Indication: OSTEOPOROSIS
     Dosage: UNK
  2. FORTEO [Suspect]
     Dosage: UNK

REACTIONS (6)
  - BACK PAIN [None]
  - MUSCLE SPASMS [None]
  - HIP FRACTURE [None]
  - MASS [None]
  - INJECTION SITE HAEMATOMA [None]
  - BACK INJURY [None]
